FAERS Safety Report 17977104 (Version 3)
Quarter: 2020Q3

REPORT INFORMATION
  Report Type: Other
  Country: NO (occurrence: NO)
  Receive Date: 20200703
  Receipt Date: 20200721
  Transmission Date: 20201103
  Serious: Yes (Hospitalization, Other)
  Sender: FDA-Public Use
  Company Number: NO-CELLTRION INC.-2020NO023455

PATIENT

DRUGS (7)
  1. REMSIMA [Suspect]
     Active Substance: INFLIXIMAB
     Dosage: 400 ? 800 MG EVERY 4TH WEEK
     Route: 042
     Dates: start: 20151012, end: 20160318
  2. PREDNISOLONE. [Concomitant]
     Active Substance: PREDNISOLONE
     Dosage: 10?20 MG DAILY, DOSE TAPPERED DOWN
  3. BUDESONIDE. [Concomitant]
     Active Substance: BUDESONIDE
     Dosage: UNK
     Route: 048
  4. REMSIMA [Suspect]
     Active Substance: INFLIXIMAB
     Dosage: 10 MG/KG (800 MG), EVERY 4 WEEK
     Route: 042
     Dates: start: 201512, end: 20160318
  5. REMSIMA [Suspect]
     Active Substance: INFLIXIMAB
     Indication: COLITIS ULCERATIVE
     Dosage: 5 MG/KG (400 MG), WEEK 0, 2 AND 6
     Route: 042
     Dates: start: 20151012, end: 201511
  6. INFLECTRA [Suspect]
     Active Substance: INFLIXIMAB-DYYB
     Indication: COLITIS ULCERATIVE
     Dosage: 800 MG, EVERY 4 WEEKS
     Route: 042
     Dates: start: 20160422, end: 2016
  7. INFLECTRA [Suspect]
     Active Substance: INFLIXIMAB-DYYB
     Dosage: 1000 MG EVERY 4TH WEEK./1000 MG, EVERY 4 WEEKS
     Route: 042
     Dates: start: 20160523, end: 20161109

REACTIONS (6)
  - Large intestine polyp [Recovered/Resolved with Sequelae]
  - Adenomatous polyposis coli [Recovered/Resolved with Sequelae]
  - Dysplasia [Unknown]
  - Therapeutic product effect incomplete [Unknown]
  - Colon neoplasm [Recovered/Resolved with Sequelae]
  - Off label use [Unknown]

NARRATIVE: CASE EVENT DATE: 2016
